FAERS Safety Report 12480310 (Version 1)
Quarter: 2016Q2

REPORT INFORMATION
  Report Type: Spontaneous
  Country: US (occurrence: None)
  Receive Date: 20160617
  Receipt Date: 20160617
  Transmission Date: 20160815
  Serious: Yes (Other)
  Sender: FDA-Public Use
  Company Number: None

PATIENT
  Age: 38 Year
  Sex: Female
  Weight: 61.24 kg

DRUGS (3)
  1. BUPROPION. [Suspect]
     Active Substance: BUPROPION
  2. BUNAVAIL [Concomitant]
     Active Substance: BUPRENORPHINE HYDROCHLORIDE\NALOXONE HYDROCHLORIDE DIHYDRATE
  3. LITHIUM. [Concomitant]
     Active Substance: LITHIUM

REACTIONS (7)
  - Muscle twitching [None]
  - Muscle spasms [None]
  - Urine abnormality [None]
  - Apathy [None]
  - Depression [None]
  - Hepatic pain [None]
  - Chromaturia [None]

NARRATIVE: CASE EVENT DATE: 20160606
